FAERS Safety Report 19106664 (Version 1)
Quarter: 2021Q2

REPORT INFORMATION
  Report Type: Other
  Country: PL (occurrence: PL)
  Receive Date: 20210407
  Receipt Date: 20210407
  Transmission Date: 20210717
  Serious: Yes (Death, Hospitalization)
  Sender: FDA-Public Use
  Company Number: PL-CELLTRION INC.-2021PL004457

PATIENT

DRUGS (15)
  1. OBINUTUZUMAB. [Suspect]
     Active Substance: OBINUTUZUMAB
     Indication: B-CELL LYMPHOMA
     Dosage: 4 CYCLES
     Route: 042
     Dates: start: 20200715, end: 20201020
  2. CAPTOPRIL. [Concomitant]
     Active Substance: CAPTOPRIL
  3. POLOCARD [Concomitant]
     Active Substance: ASPIRIN
  4. PREDNISONE. [Suspect]
     Active Substance: PREDNISONE
     Indication: B-CELL LYMPHOMA
     Dosage: 8 CYCLES
     Route: 065
     Dates: start: 20180528, end: 20181031
  5. MAGNESIUM;PYRIDOXINE HYDROCHLORIDE [Concomitant]
  6. RITUXIMAB (UNKNOWN) [Suspect]
     Active Substance: RITUXIMAB
     Indication: B-CELL LYMPHOMA
     Dosage: 8 CYCLES, EVERY 2 MONTHS
     Route: 065
     Dates: start: 20180528, end: 20181031
  7. RITUXIMAB (UNKNOWN) [Suspect]
     Active Substance: RITUXIMAB
     Dosage: 9 DOSES OF RITUXIMAB EVERY 2 MONTHS
     Route: 065
     Dates: start: 20200103, end: 20200519
  8. CYCLOPHOSPHAMIDE. [Suspect]
     Active Substance: CYCLOPHOSPHAMIDE
     Indication: B-CELL LYMPHOMA
     Dosage: 8 CYCLES
     Route: 065
     Dates: start: 20180528, end: 20181031
  9. BENDAMUSTINE [Suspect]
     Active Substance: BENDAMUSTINE
     Indication: B-CELL LYMPHOMA
     Dosage: 4 CYCLES
     Route: 065
     Dates: start: 20200715, end: 20201020
  10. KALDYUM [Concomitant]
     Active Substance: POTASSIUM CHLORIDE
  11. ROSUCARD [Concomitant]
     Active Substance: ROSUVASTATIN CALCIUM
  12. VINCRISTINE SULFATE. [Suspect]
     Active Substance: VINCRISTINE SULFATE
     Indication: B-CELL LYMPHOMA
     Dosage: 8 CYCLES
     Route: 065
     Dates: start: 20180528, end: 20181031
  13. XANAX [Concomitant]
     Active Substance: ALPRAZOLAM
  14. METEOSPASMYL (ALVERINE CITRATE\DIMETHICONE) [Concomitant]
     Active Substance: ALVERINE CITRATE\DIMETHICONE
  15. BIOSOTAL [Concomitant]

REACTIONS (6)
  - COVID-19 [Fatal]
  - Weight increased [Unknown]
  - Oedema peripheral [Unknown]
  - Peripheral swelling [Unknown]
  - Asthenia [Unknown]
  - Cardiac arrest [Fatal]

NARRATIVE: CASE EVENT DATE: 202010
